FAERS Safety Report 23581764 (Version 1)
Quarter: 2024Q1

REPORT INFORMATION
  Report Type: Spontaneous
  Country: US (occurrence: None)
  Receive Date: 20240229
  Receipt Date: 20240229
  Transmission Date: 20240409
  Serious: Yes (Hospitalization, Other)
  Sender: FDA-Public Use
  Company Number: US-ROCHE-3505147

PATIENT
  Age: 54 Year
  Sex: Female
  Weight: 116 kg

DRUGS (10)
  1. ALECENSA [Suspect]
     Active Substance: ALECTINIB HYDROCHLORIDE
     Indication: Lung neoplasm malignant
     Route: 048
     Dates: start: 20230528
  2. FAMOTIDINE [Concomitant]
     Active Substance: FAMOTIDINE
     Dates: start: 20230615
  3. METHYLPHENIDATE [Concomitant]
     Active Substance: METHYLPHENIDATE
     Route: 048
     Dates: start: 20220907
  4. TORSEMIDE [Concomitant]
     Active Substance: TORSEMIDE
     Indication: Oedema
     Route: 048
     Dates: start: 20220708
  5. DULOXETINE [Concomitant]
     Active Substance: DULOXETINE
  6. POTASSIUM [Concomitant]
     Active Substance: POTASSIUM
  7. ESOMEPRAZOLE [Concomitant]
     Active Substance: ESOMEPRAZOLE
     Dates: start: 20230705
  8. MONTELUKAST [Concomitant]
     Active Substance: MONTELUKAST SODIUM
  9. LORATADINE [Concomitant]
     Active Substance: LORATADINE
  10. HYDROXYZINE [Concomitant]
     Active Substance: HYDROXYZINE HYDROCHLORIDE
     Dates: start: 20230615

REACTIONS (3)
  - Pyrexia [Recovered/Resolved]
  - Rash [Recovered/Resolved]
  - Oedema [Not Recovered/Not Resolved]

NARRATIVE: CASE EVENT DATE: 20230608
